FAERS Safety Report 5588287-3 (Version None)
Quarter: 2008Q1

REPORT INFORMATION
  Report Type: 
  Country: None (occurrence: None)
  Receive Date: 20080108
  Receipt Date: 20071231
  Transmission Date: 20080703
  Serious: Yes (Death, Life-Threatening, Hospitalization, Other)
  Sender: FDA-Public Use
  Company Number: 08012367

PATIENT
  Age: 36 Year
  Sex: Male

DRUGS (5)
  1. CARBAMAZEPINE [Suspect]
     Dosage: 400MG, BID, ORAL
     Route: 048
  2. ZUCLOPENTHIXOL (ZUCLOPENTXIXOL) [Suspect]
     Dosage: 20MG, QD, ORAL
     Route: 048
  3. QUETIAPINE [Suspect]
     Dosage: 1000MG, QD, ORAL
     Route: 048
  4. BENZTROPINE MESYLATE [Suspect]
     Dosage: 2MG, QD, ORAL
     Route: 048
  5. LEVOTHYROXINE SODIUM [Suspect]
     Dosage: 0.05MG, QD, ORAL
     Route: 048

REACTIONS (13)
  - ACTIVATED PARTIAL THROMBOPLASTIN TIME PROLONGED [None]
  - ALANINE AMINOTRANSFERASE INCREASED [None]
  - ASPARTATE AMINOTRANSFERASE INCREASED [None]
  - BLOOD BICARBONATE DECREASED [None]
  - BLOOD CREATINE PHOSPHOKINASE INCREASED [None]
  - BLOOD CREATININE INCREASED [None]
  - BLOOD PH DECREASED [None]
  - CARDIAC ARREST [None]
  - HEADACHE [None]
  - HEAT STROKE [None]
  - INCOHERENT [None]
  - LOSS OF CONSCIOUSNESS [None]
  - MULTI-ORGAN DISORDER [None]
